FAERS Safety Report 25498883 (Version 3)
Quarter: 2025Q3

REPORT INFORMATION
  Report Type: Spontaneous
  Country: MX (occurrence: MX)
  Receive Date: 20250701
  Receipt Date: 20250812
  Transmission Date: 20251020
  Serious: Yes (Other)
  Sender: SANDOZ
  Company Number: MX-002147023-NVSC2025MX091918

PATIENT
  Sex: Female
  Weight: 87 kg

DRUGS (8)
  1. KISQALI [Suspect]
     Active Substance: RIBOCICLIB SUCCINATE
     Indication: Breast cancer
     Dosage: 3 DF, QD, 200 MG (START DATE: 2023)
     Route: 048
  2. KISQALI [Suspect]
     Active Substance: RIBOCICLIB SUCCINATE
     Indication: Metastases to bone
  3. METFORMIN [Suspect]
     Active Substance: METFORMIN HYDROCHLORIDE
     Indication: Diabetes mellitus
     Dosage: 1 DF, Q12H
     Route: 048
     Dates: start: 2018
  4. ANASTROZOLE [Concomitant]
     Active Substance: ANASTROZOLE
     Dosage: 1 DF, QD (1 MG)
     Route: 048
     Dates: start: 202302
  5. ANASTROZOLE [Concomitant]
     Active Substance: ANASTROZOLE
     Indication: Breast cancer
     Dosage: 1 DF, QD (TABLET)
     Route: 048
     Dates: start: 2018
  6. DENOSUMAB [Concomitant]
     Active Substance: DENOSUMAB
     Indication: Metastatic bone disease prophylaxis
     Dosage: 1 DF, QMO (INJECTABLE SOLUTION)
     Route: 058
     Dates: start: 202412
  7. INSULIN NOS [Concomitant]
     Active Substance: INSULIN NOS
     Indication: Diabetes mellitus
     Dosage: 10 UL, QD (INJECTABLE SOLUTION)
     Route: 058
     Dates: start: 2018, end: 202505
  8. LINAGLIPTIN [Concomitant]
     Active Substance: LINAGLIPTIN
     Indication: Diabetes mellitus
     Dosage: 1 DF, QD QD (5 MG) (TABLET)
     Route: 048

REACTIONS (9)
  - Metastases to neck [Unknown]
  - Fatigue [Not Recovered/Not Resolved]
  - Agitation [Recovering/Resolving]
  - Cold sweat [Recovering/Resolving]
  - Insomnia [Recovering/Resolving]
  - Myalgia [Not Recovered/Not Resolved]
  - Peripheral swelling [Recovered/Resolved]
  - Swelling face [Recovered/Resolved]
  - Influenza [Not Recovered/Not Resolved]

NARRATIVE: CASE EVENT DATE: 20180101
